FAERS Safety Report 23267046 (Version 4)
Quarter: 2024Q1

REPORT INFORMATION
  Report Type: Spontaneous
  Country: SE (occurrence: SE)
  Receive Date: 20231206
  Receipt Date: 20240321
  Transmission Date: 20240410
  Serious: Yes (Other)
  Sender: FDA-Public Use
  Company Number: SE-PFIZER INC-202300377062

PATIENT
  Age: 2 Year
  Sex: Female

DRUGS (1)
  1. FRAGMIN [Suspect]
     Active Substance: DALTEPARIN SODIUM
     Indication: Thrombosis prophylaxis
     Dosage: 3000 IU
     Route: 058

REACTIONS (2)
  - Accidental overdose [Unknown]
  - Product label confusion [Unknown]

NARRATIVE: CASE EVENT DATE: 20230101
